FAERS Safety Report 8856565 (Version 1)
Quarter: 2012Q4

REPORT INFORMATION
  Report Type: Spontaneous
  Country: IN (occurrence: None)
  Receive Date: 20121019
  Receipt Date: 20121019
  Transmission Date: 20130627
  Serious: Yes (Hospitalization)
  Sender: FDA-Public Use
  Company Number: IPC201210-000532

PATIENT
  Age: 28 Year
  Sex: Male

DRUGS (1)
  1. CHLOROQUINE PHOSPHATE [Suspect]
     Dates: start: 20110307

REACTIONS (13)
  - Paralysis [None]
  - Hypokalaemia [None]
  - Dehydration [None]
  - Vomiting [None]
  - Asthenia [None]
  - Metabolic alkalosis [None]
  - Lethargy [None]
  - Fall [None]
  - Hypotonia [None]
  - Gastrointestinal sounds abnormal [None]
  - Electrocardiogram U-wave abnormality [None]
  - Electrocardiogram ST segment depression [None]
  - Quadriplegia [None]
